FAERS Safety Report 6204696-3 (Version None)
Quarter: 2009Q2

REPORT INFORMATION
  Report Type: 
  Country: None (occurrence: None)
  Receive Date: 20090527
  Receipt Date: 20090519
  Transmission Date: 20091009
  Serious: Yes (Hospitalization)
  Sender: FDA-Public Use
  Company Number: PHHY2008MX21323

PATIENT
  Sex: Female

DRUGS (2)
  1. DIOVAN HCT [Suspect]
     Indication: HYPERTENSION
     Dosage: 80/12.5 MG DAILY
     Route: 048
     Dates: start: 20030101
  2. DIOVAN HCT [Suspect]
     Dosage: 0.5 DF DAILY
     Route: 048
     Dates: start: 20081201

REACTIONS (3)
  - CHOLELITHIASIS [None]
  - GALLBLADDER OPERATION [None]
  - SURGERY [None]
